FAERS Safety Report 14110267 (Version 1)
Quarter: 2017Q4

REPORT INFORMATION
  Report Type: Report from Study
  Country: CO (occurrence: CO)
  Receive Date: 20171020
  Receipt Date: 20171020
  Transmission Date: 20180321
  Serious: Yes (Other)
  Sender: FDA-Public Use
  Company Number: CO-ASTELLAS-2017US000235

PATIENT
  Age: 17 Year
  Sex: Male
  Weight: 42 kg

DRUGS (2)
  1. TACROLIMUS. [Suspect]
     Active Substance: TACROLIMUS
     Indication: HEART TRANSPLANT
     Dosage: 8 MG 8 MG (ONE CAPSULE OF 5MG AND 3 CAPSULE OF 1 MG), ONCE DAILY
     Route: 048
     Dates: start: 20100301
  2. TACROLIMUS. [Suspect]
     Active Substance: TACROLIMUS
     Indication: HEART TRANSPLANT
     Dosage: 8 MG (ONE CAPSULE OF 5MG AND 3 CAPSULE OF 1 MG), ONCE DAILY
     Route: 048
     Dates: start: 20100301

REACTIONS (8)
  - Pain in extremity [Recovering/Resolving]
  - Diarrhoea [Recovering/Resolving]
  - Diarrhoea [Recovering/Resolving]
  - Seizure [Recovering/Resolving]
  - Hypertension [Recovering/Resolving]
  - Headache [Recovering/Resolving]
  - Depressed mood [Recovering/Resolving]
  - Influenza [Recovering/Resolving]

NARRATIVE: CASE EVENT DATE: 20161215
